FAERS Safety Report 9248797 (Version 1)
Quarter: 2013Q2

REPORT INFORMATION
  Report Type: Spontaneous
  Country: FR (occurrence: FR)
  Receive Date: 20130423
  Receipt Date: 20130423
  Transmission Date: 20140414
  Serious: Yes (Hospitalization)
  Sender: FDA-Public Use
  Company Number: FR-BAYER-2013-048983

PATIENT
  Age: 24 Year
  Sex: Male

DRUGS (6)
  1. CIFLOX [Suspect]
     Dosage: 400 MG, BID
     Route: 042
     Dates: start: 20130310, end: 20130319
  2. TIENAM [Suspect]
     Dosage: 1 G, TID
     Route: 042
     Dates: end: 20130319
  3. TRIFLUCAN [Suspect]
     Dosage: UNK
     Route: 048
     Dates: start: 20130309, end: 20130318
  4. ZYVOXID [Concomitant]
     Dosage: 600 MG, BID
     Route: 048
     Dates: start: 20130312
  5. BACTRIM [Concomitant]
     Route: 048
  6. NEUPOGEN [Concomitant]
     Dosage: UNK
     Route: 042
     Dates: start: 20130309, end: 20130313

REACTIONS (2)
  - Cholestasis [Recovering/Resolving]
  - Hepatocellular injury [Recovered/Resolved]
